FAERS Safety Report 8052827-5 (Version None)
Quarter: 2012Q1

REPORT INFORMATION
  Report Type: 
  Country: None (occurrence: None)
  Receive Date: 20120118
  Receipt Date: 20120111
  Transmission Date: 20120608
  Serious: Yes (Death, Life-Threatening, Hospitalization, Other)
  Sender: FDA-Public Use
  Company Number: PHHY2011DE109680

PATIENT
  Sex: Male
  Weight: 92 kg

DRUGS (3)
  1. MICARDIS HCT [Concomitant]
     Dosage: 1 DF, UNK
     Dates: start: 20080101, end: 20111001
  2. RASILEZ [Suspect]
     Indication: HYPERTENSION
     Dosage: 150 MG, DAILY
     Route: 048
     Dates: start: 20081022, end: 20111010
  3. INSULIN [Concomitant]
     Indication: DIABETES MELLITUS

REACTIONS (4)
  - INFECTION [None]
  - GLYCOSYLATED HAEMOGLOBIN INCREASED [None]
  - ACUTE MYOCARDIAL INFARCTION [None]
  - CARDIOGENIC SHOCK [None]
